FAERS Safety Report 14017938 (Version 2)
Quarter: 2017Q4

REPORT INFORMATION
  Report Type: Spontaneous
  Country: US (occurrence: US)
  Receive Date: 20170928
  Receipt Date: 20171127
  Transmission Date: 20180321
  Serious: No
  Sender: FDA-Public Use
  Company Number: US-BIOGEN-2017BI00462621

PATIENT
  Sex: Female

DRUGS (4)
  1. TYSABRI [Suspect]
     Active Substance: NATALIZUMAB
     Dates: start: 20130111, end: 20130208
  2. TYSABRI [Suspect]
     Active Substance: NATALIZUMAB
     Dates: start: 20140701, end: 20140728
  3. TYSABRI [Suspect]
     Active Substance: NATALIZUMAB
     Dates: start: 20150114, end: 20150217
  4. TYSABRI [Suspect]
     Active Substance: NATALIZUMAB
     Indication: MULTIPLE SCLEROSIS
     Route: 065
     Dates: start: 20110925, end: 20120216

REACTIONS (2)
  - Cognitive disorder [Unknown]
  - Drug ineffective [Unknown]
